FAERS Safety Report 7890123-7 (Version None)
Quarter: 2011Q4

REPORT INFORMATION
  Report Type: 
  Country: None (occurrence: None)
  Receive Date: 20111103
  Receipt Date: 20111020
  Transmission Date: 20120403
  Serious: Yes (Disabling)
  Sender: FDA-Public Use
  Company Number: GB-WATSON-2011-14424

PATIENT
  Age: 47 Year
  Sex: Female
  Weight: 62 kg

DRUGS (2)
  1. TERBINAFINE HCL [Suspect]
     Indication: ONYCHOMYCOSIS
     Dosage: 250 MG, DAILY
     Route: 048
     Dates: start: 20110728, end: 20110817
  2. LORATADINE [Concomitant]
     Indication: PRODUCT USED FOR UNKNOWN INDICATION
     Route: 065

REACTIONS (8)
  - VISION BLURRED [None]
  - HEADACHE [None]
  - ADRENAL SUPPRESSION [None]
  - MALAISE [None]
  - HYPOAESTHESIA [None]
  - PARAESTHESIA [None]
  - BLOOD SODIUM DECREASED [None]
  - HYPERAESTHESIA [None]
